FAERS Safety Report 5106877-9 (Version None)
Quarter: 2006Q3

REPORT INFORMATION
  Report Type: 
  Country: None (occurrence: None)
  Receive Date: 20060913
  Receipt Date: 20060829
  Transmission Date: 20061208
  Serious: Yes (Other)
  Sender: FDA-Public Use
  Company Number: 112342ISR

PATIENT
  Age: 72 Year
  Sex: Female

DRUGS (3)
  1. FOLINIC ACID [Suspect]
     Dosage: 4768.51 MILLIGRAM, INTRAVENOUS (NOS)
     Route: 042
     Dates: start: 20060502, end: 20060822
  2. FLUOROURACIL [Suspect]
  3. OXALIPLATIN [Suspect]
     Dosage: 198.7 MILLIGRAM INTRAVENOUS (NOS)
     Route: 042
     Dates: start: 20060502, end: 20060822

REACTIONS (1)
  - PERIPHERAL SENSORY NEUROPATHY [None]
